FAERS Safety Report 18344446 (Version 1)
Quarter: 2020Q4

REPORT INFORMATION
  Report Type: Spontaneous
  Country: ES (occurrence: ES)
  Receive Date: 20201005
  Receipt Date: 20201005
  Transmission Date: 20210114
  Serious: Yes (Hospitalization)
  Sender: FDA-Public Use
  Company Number: NVSC2020ES264205

PATIENT
  Age: 70 Year
  Sex: Male

DRUGS (2)
  1. EPLERENONA [Interacting]
     Active Substance: EPLERENONE
     Indication: CARDIAC FAILURE
     Dosage: 50 MG, Q24H (0-1-0)
     Route: 048
     Dates: start: 20200701, end: 20200704
  2. ENALAPRIL [Suspect]
     Active Substance: ENALAPRIL
     Indication: HYPERTENSION
     Dosage: 2.5 MG, Q12H (1/2-0-1/2)
     Route: 048
     Dates: start: 20200701, end: 20200704

REACTIONS (1)
  - Cardiogenic shock [Recovered/Resolved]

NARRATIVE: CASE EVENT DATE: 20200704
